FAERS Safety Report 13617573 (Version 2)
Quarter: 2018Q2

REPORT INFORMATION
  Report Type: Spontaneous
  Country: US (occurrence: US)
  Receive Date: 20170606
  Receipt Date: 20180517
  Transmission Date: 20180711
  Serious: No
  Sender: FDA-Public Use
  Company Number: US-SA-2017SA041025

PATIENT
  Age: 39 Year
  Sex: Male

DRUGS (7)
  1. SOLOSTAR [Suspect]
     Active Substance: DEVICE
     Indication: TYPE 1 DIABETES MELLITUS
  2. NPH INSULIN [Concomitant]
     Active Substance: INSULIN BEEF
     Route: 065
  3. TOUJEO [Concomitant]
     Active Substance: INSULIN GLARGINE
  4. SOLOSTAR [Concomitant]
     Active Substance: DEVICE
  5. SOLOSTAR [Suspect]
     Active Substance: DEVICE
     Indication: TYPE 1 DIABETES MELLITUS
  6. LANTUS SOLOSTAR [Suspect]
     Active Substance: INSULIN GLARGINE
     Indication: TYPE 1 DIABETES MELLITUS
     Dosage: DOSE:28 UNIT(S)
     Route: 065
  7. LANTUS SOLOSTAR [Suspect]
     Active Substance: INSULIN GLARGINE
     Indication: TYPE 1 DIABETES MELLITUS
     Dosage: DOSE:34 UNIT(S)
     Route: 065

REACTIONS (3)
  - Blood glucose fluctuation [Unknown]
  - Blood glucose decreased [Unknown]
  - Therapeutic response decreased [Unknown]
